FAERS Safety Report 19196351 (Version 3)
Quarter: 2022Q1

REPORT INFORMATION
  Report Type: Spontaneous
  Country: DE (occurrence: DE)
  Receive Date: 20210429
  Receipt Date: 20220201
  Transmission Date: 20220424
  Serious: Yes (Death, Other)
  Sender: FDA-Public Use
  Company Number: None

PATIENT
  Age: 35 Year
  Sex: Female
  Weight: 80 kg

DRUGS (5)
  1. METOPROLOL SUCCINATE [Suspect]
     Active Substance: METOPROLOL SUCCINATE
     Dosage: 23,5 MG 1-0-0-0
     Route: 048
     Dates: start: 20140913
  2. QUETIAPINE [Suspect]
     Active Substance: QUETIAPINE
     Dosage: 300 MG 0-0-0-1
     Route: 048
     Dates: start: 2020
  3. PROMETHAZINE [Suspect]
     Active Substance: PROMETHAZINE HYDROCHLORIDE
     Dosage: 1 ST MAX 44X/24 H 4 H
     Route: 048
     Dates: start: 20200731
  4. INDAPAMIDE\PERINDOPRIL ARGININE [Suspect]
     Active Substance: INDAPAMIDE\PERINDOPRIL ARGININE
     Dosage: 5 MG / 1,25 MG 1-0-0-0
     Route: 048
     Dates: start: 20140913
  5. AMISULPRIDE [Suspect]
     Active Substance: AMISULPRIDE
     Dosage: 100 MG 1-0-1
     Route: 048
     Dates: start: 20200731

REACTIONS (3)
  - Death [Fatal]
  - Multiple organ dysfunction syndrome [Fatal]
  - Drug interaction [Unknown]

NARRATIVE: CASE EVENT DATE: 20210101
